FAERS Safety Report 7395393-X (Version None)
Quarter: 2011Q2

REPORT INFORMATION
  Report Type: 
  Country: None (occurrence: None)
  Receive Date: 20110405
  Receipt Date: 20110207
  Transmission Date: 20111010
  Serious: Yes (Hospitalization)
  Sender: FDA-Public Use
  Company Number: PHHY2011IT19782

PATIENT
  Sex: Female

DRUGS (7)
  1. DOXORUBICIN SANDOZ [Suspect]
     Indication: LYMPHOMA
     Dosage: 2 MG/ML, UNK
     Route: 042
     Dates: start: 20100311, end: 20100713
  2. LENOGRASTIM [Suspect]
     Dosage: UNK
     Dates: start: 20100713
  3. PREDNISONE [Suspect]
     Indication: LYMPHOMA
     Dosage: 10 MG/ML, UNK
     Route: 042
     Dates: start: 20100311, end: 20100713
  4. MABTHERA [Suspect]
     Indication: LYMPHOMA
     Dosage: 10 MG/ML, UNK
     Route: 042
     Dates: start: 20100318, end: 20100713
  5. ENDOXAN [Suspect]
     Indication: LYMPHOMA
     Dosage: 1 G, UNK
     Route: 042
     Dates: start: 20100311, end: 20100713
  6. VINCRISTINE [Suspect]
     Indication: LYMPHOMA
     Dosage: 10 MG/ML, UNK
     Route: 042
     Dates: start: 20100311, end: 20100719
  7. R-CHOP [Suspect]
     Indication: CHEMOTHERAPY

REACTIONS (2)
  - PYREXIA [None]
  - FEBRILE NEUTROPENIA [None]
